FAERS Safety Report 25187721 (Version 1)
Quarter: 2025Q2

REPORT INFORMATION
  Report Type: Spontaneous
  Country: EG (occurrence: EG)
  Receive Date: 20250411
  Receipt Date: 20250411
  Transmission Date: 20250717
  Serious: Yes (Hospitalization)
  Sender: CHATTEM
  Company Number: EG-OPELLA-2025OHG009773

PATIENT
  Sex: Female

DRUGS (1)
  1. FEXOFENADINE [Suspect]
     Active Substance: FEXOFENADINE HYDROCHLORIDE
     Indication: Nasopharyngitis
     Dosage: TOOK THREE TABLETS OF TELFAST 180 AT SUNSET AND TWO BEFORE FAJR.
     Route: 065

REACTIONS (5)
  - Overdose [Unknown]
  - Tremor [Recovering/Resolving]
  - Burning sensation [Unknown]
  - Nausea [Unknown]
  - Dry mouth [Not Recovered/Not Resolved]
